FAERS Safety Report 5493418-X (Version None)
Quarter: 2007Q4

REPORT INFORMATION
  Report Type: 
  Country: None (occurrence: None)
  Receive Date: 20071023
  Receipt Date: 20071009
  Transmission Date: 20080405
  Serious: Yes (Other)
  Sender: FDA-Public Use
  Company Number: NO-ELI_LILLY_AND_COMPANY-NO200710003757

PATIENT
  Age: 16 Year
  Sex: Female

DRUGS (3)
  1. STRATTERA [Suspect]
     Dosage: UNK, UNKNOWN
  2. CONCERTA [Concomitant]
     Dosage: UNK, UNKNOWN
  3. RITALIN [Concomitant]
     Dosage: UNK, UNKNOWN

REACTIONS (8)
  - CONSCIOUSNESS FLUCTUATING [None]
  - DIZZINESS [None]
  - DRUG LEVEL INCREASED [None]
  - DYSKINESIA [None]
  - HEART RATE INCREASED [None]
  - HYPERTENSION [None]
  - INTENTIONAL OVERDOSE [None]
  - TREMOR [None]
